FAERS Safety Report 17677235 (Version 2)
Quarter: 2020Q2

REPORT INFORMATION
  Report Type: Spontaneous
  Country: US (occurrence: US)
  Receive Date: 20200416
  Receipt Date: 20200515
  Transmission Date: 20200714
  Serious: No
  Sender: FDA-Public Use
  Company Number: US-ASTRAZENECA-2020SE43745

PATIENT
  Sex: Female

DRUGS (1)
  1. BYDUREON BCISE [Suspect]
     Active Substance: EXENATIDE
     Dosage: ONCE A WEEK
     Route: 065
     Dates: start: 2020

REACTIONS (6)
  - Influenza [Unknown]
  - Malaise [Unknown]
  - Device leakage [Unknown]
  - Bronchitis [Unknown]
  - Blood glucose abnormal [Unknown]
  - Device issue [Unknown]
